FAERS Safety Report 13204094 (Version 1)
Quarter: 2017Q1

REPORT INFORMATION
  Report Type: Report from Study
  Country: FR (occurrence: FR)
  Receive Date: 20170209
  Receipt Date: 20170209
  Transmission Date: 20170428
  Serious: Yes (Hospitalization, Other)
  Sender: FDA-Public Use
  Company Number: FR-MEDAC PHARMA, INC.-1062923

PATIENT
  Age: 69 Year
  Sex: Male

DRUGS (4)
  1. AVODART [Concomitant]
     Active Substance: DUTASTERIDE
     Dates: start: 201412
  2. METOJECT [Suspect]
     Active Substance: METHOTREXATE SODIUM
     Indication: PSORIASIS
     Route: 058
     Dates: start: 201103
  3. PERMIXON [Concomitant]
     Active Substance: SAW PALMETTO
     Dates: start: 2005
  4. SILODYX [Concomitant]
     Active Substance: SILODOSIN
     Dates: start: 2013

REACTIONS (1)
  - Prostate cancer [Not Recovered/Not Resolved]

NARRATIVE: CASE EVENT DATE: 201504
